FAERS Safety Report 6084529-9 (Version None)
Quarter: 2009Q1

REPORT INFORMATION
  Report Type: 
  Country: None (occurrence: None)
  Receive Date: 20090219
  Receipt Date: 20090209
  Transmission Date: 20090719
  Serious: Yes (Hospitalization)
  Sender: FDA-Public Use
  Company Number: US-ELI_LILLY_AND_COMPANY-US200902001974

PATIENT
  Age: 16 Year
  Sex: Female

DRUGS (3)
  1. CYMBALTA [Suspect]
     Indication: NEURALGIA
     Dosage: 20 MG, UNK
     Route: 048
     Dates: start: 20081228, end: 20090103
  2. CYMBALTA [Suspect]
     Dosage: 40 MG, UNK
     Route: 048
     Dates: start: 20090104, end: 20090111
  3. CYMBALTA [Suspect]
     Dosage: 60 MG, UNK
     Route: 048
     Dates: start: 20090112, end: 20090101

REACTIONS (2)
  - TIC [None]
  - TREMOR [None]
